FAERS Safety Report 12401734 (Version 2)
Quarter: 2016Q3

REPORT INFORMATION
  Report Type: Spontaneous
  Country: US (occurrence: US)
  Receive Date: 20160525
  Receipt Date: 20160719
  Transmission Date: 20161109
  Serious: Yes (Death, Hospitalization)
  Sender: FDA-Public Use
  Company Number: US-INSYS THERAPEUTICS, INC-INS201605-000218

PATIENT
  Age: 42 Year
  Sex: Female

DRUGS (14)
  1. CALAN SR [Concomitant]
     Active Substance: VERAPAMIL HYDROCHLORIDE
  2. LEVOTHYROXINE. [Concomitant]
     Active Substance: LEVOTHYROXINE
  3. SODIUM BICARBONATE INFUSION [Concomitant]
  4. ALBUTEROL. [Concomitant]
     Active Substance: ALBUTEROL
  5. TRAZODONE [Concomitant]
     Active Substance: TRAZODONE HYDROCHLORIDE
  6. ACETAMINOPHEN/HYDROCODONE [Concomitant]
     Active Substance: ACETAMINOPHEN\HYDROCODONE
  7. HYDROMORPHONE [Suspect]
     Active Substance: HYDROMORPHONE
     Indication: COMPLETED SUICIDE
  8. FENTANYL. [Suspect]
     Active Substance: FENTANYL
     Indication: COMPLETED SUICIDE
     Route: 065
  9. FUROSEMIDE. [Concomitant]
     Active Substance: FUROSEMIDE
  10. TAMSULOSIN [Concomitant]
     Active Substance: TAMSULOSIN
  11. LEVOCETIRIZINE [Concomitant]
     Active Substance: LEVOCETIRIZINE
  12. ALENDRONATE [Concomitant]
     Active Substance: ALENDRONATE SODIUM
  13. ESZOPICLONE. [Concomitant]
     Active Substance: ESZOPICLONE
  14. BUTALBITAL [Suspect]
     Active Substance: BUTALBITAL
     Indication: COMPLETED SUICIDE

REACTIONS (10)
  - Hyperthermia [Unknown]
  - Multiple organ dysfunction syndrome [Unknown]
  - Renal failure [Unknown]
  - Anoxia [Unknown]
  - Disseminated intravascular coagulation [Unknown]
  - Cyanosis [Unknown]
  - Toxicity to various agents [Fatal]
  - Tachycardia [Unknown]
  - Acute respiratory distress syndrome [Unknown]
  - Hypertension [Unknown]

NARRATIVE: CASE EVENT DATE: 20140605
